FAERS Safety Report 23518036 (Version 2)
Quarter: 2024Q1

REPORT INFORMATION
  Report Type: Spontaneous
  Country: FR (occurrence: FR)
  Receive Date: 20240213
  Receipt Date: 20240306
  Transmission Date: 20240409
  Serious: Yes (Hospitalization, Other)
  Sender: FDA-Public Use
  Company Number: FR-AFSSAPS-AN2024000116

PATIENT
  Age: 71 Year
  Sex: Male
  Weight: 118 kg

DRUGS (13)
  1. OXYCODONE [Suspect]
     Active Substance: OXYCODONE\OXYCODONE HYDROCHLORIDE
     Indication: Pain
     Dosage: 20 MILLIGRAM, ONCE A DAY (VARIABLE)
     Route: 048
     Dates: end: 20231226
  2. OXYCODONE [Suspect]
     Active Substance: OXYCODONE\OXYCODONE HYDROCHLORIDE
     Dosage: 5 MILLIGRAM, ONCE A DAY
     Route: 048
     Dates: end: 20231226
  3. METOPIMAZINE [Suspect]
     Active Substance: METOPIMAZINE
     Indication: Vomiting
     Dosage: 22.5 MILLIGRAM, ONCE A DAY
     Route: 048
     Dates: end: 20231226
  4. METFORMIN [Suspect]
     Active Substance: METFORMIN HYDROCHLORIDE
     Indication: Diabetes mellitus
     Dosage: 1 GRAM, ONCE A DAY
     Route: 048
     Dates: end: 20231226
  5. ERLEADA [Suspect]
     Active Substance: APALUTAMIDE
     Indication: Prostate cancer
     Dosage: 240 MILLIGRAM, ONCE A DAY
     Route: 048
     Dates: start: 20231109, end: 20231224
  6. MESTINON [Suspect]
     Active Substance: PYRIDOSTIGMINE BROMIDE
     Indication: Product used for unknown indication
     Dosage: 2 DOSAGE FORM, ONCE A DAY
     Route: 048
     Dates: end: 20231226
  7. MOVICOL [Suspect]
     Active Substance: POLYETHYLENE GLYCOL 3350\POTASSIUM CHLORIDE\SODIUM BICARBONATE\SODIUM CHLORIDE
     Indication: Constipation
     Dosage: 2 DOSAGE FORM, ONCE A DAY
     Route: 048
     Dates: end: 20231226
  8. DECAPEPTYL LP [Concomitant]
     Indication: Product used for unknown indication
     Dosage: 1 DOSAGE FORM, EVERY 3 MONTHS
     Route: 058
  9. HYDROCHLOROTHIAZIDE\IRBESARTAN [Concomitant]
     Active Substance: HYDROCHLOROTHIAZIDE\IRBESARTAN
     Indication: Product used for unknown indication
     Dosage: 1 DOSAGE FORM, ONCE A DAY
     Route: 048
  10. ACETAMINOPHEN [Concomitant]
     Active Substance: ACETAMINOPHEN
     Indication: Product used for unknown indication
     Dosage: 3 GRAM, ONCE A DAY
     Route: 048
  11. LERCANIDIPINE [Concomitant]
     Active Substance: LERCANIDIPINE
     Indication: Product used for unknown indication
     Dosage: 10 MILLIGRAM, ONCE A DAY
     Route: 048
     Dates: end: 20231226
  12. AMILORIDE HYDROCHLORIDE [Concomitant]
     Active Substance: AMILORIDE HYDROCHLORIDE
     Indication: Product used for unknown indication
     Dosage: 1 DOSAGE FORM, ONCE A DAY
     Route: 048
     Dates: end: 20231226
  13. ALDOMET [Concomitant]
     Active Substance: METHYLDOPA
     Indication: Product used for unknown indication
     Dosage: 1 DOSAGE FORM, ONCE A DAY
     Route: 048
     Dates: end: 20231226

REACTIONS (3)
  - Agranulocytosis [Recovered/Resolved]
  - Rash maculo-papular [Recovering/Resolving]
  - Intestinal transit time decreased [Recovered/Resolved]

NARRATIVE: CASE EVENT DATE: 20231201
